FAERS Safety Report 15410540 (Version 3)
Quarter: 2018Q4

REPORT INFORMATION
  Report Type: Spontaneous
  Country: IT (occurrence: IT)
  Receive Date: 20180921
  Receipt Date: 20181224
  Transmission Date: 20190204
  Serious: Yes (Other)
  Sender: FDA-Public Use
  Company Number: IT-CELLTRION INC.-2018IT022668

PATIENT

DRUGS (2)
  1. INFLIXIMAB PFIZER (UNKNOWN) [Suspect]
     Active Substance: INFLIXIMAB
     Indication: PITYRIASIS RUBRA PILARIS
     Dosage: 5 MG/KG, CYCLIC (AT WK 0,4 UP TO 2 MONTHS);
     Route: 042
  2. ACITRETIN. [Concomitant]
     Active Substance: ACITRETIN

REACTIONS (4)
  - Rash [Unknown]
  - Bradycardia [Unknown]
  - Dyspnoea [Unknown]
  - Product use in unapproved indication [Unknown]
